FAERS Safety Report 7299890-7 (Version None)
Quarter: 2011Q1

REPORT INFORMATION
  Report Type: 
  Country: None (occurrence: None)
  Receive Date: 20110208
  Receipt Date: 20110127
  Transmission Date: 20110831
  Serious: Yes (Other)
  Sender: FDA-Public Use
  Company Number: MSER20110006

PATIENT
  Age: 81 Year
  Sex: Male

DRUGS (1)
  1. MORPHINE SULFATE [Suspect]
     Indication: PAIN
     Dosage: 40 MG, 1 IN 24 HR, INTRAVENOUS; 15 MG, 3 IN 1 D, SUBCUTANEOUS; 10 MG, 1 IN 24 HR, INTRAVENOUS

REACTIONS (7)
  - CONFUSIONAL STATE [None]
  - RESTLESSNESS [None]
  - DELIRIUM [None]
  - PAIN [None]
  - FEAR [None]
  - DISORIENTATION [None]
  - DYSSTASIA [None]
